FAERS Safety Report 9638522 (Version 2)
Quarter: 2013Q4

REPORT INFORMATION
  Report Type: Spontaneous
  Country: US (occurrence: US)
  Receive Date: 20131022
  Receipt Date: 20131022
  Transmission Date: 20140711
  Serious: Yes (Hospitalization)
  Sender: FDA-Public Use
  Company Number: CHPA2013US014082

PATIENT
  Age: 83 Year
  Sex: Female

DRUGS (3)
  1. VOLTAREN GEL [Suspect]
     Indication: BACK PAIN
     Dosage: UNK, BID
     Route: 061
  2. VOLTAREN GEL [Suspect]
     Dosage: UNK, TID
     Route: 061
  3. VOLTAREN GEL [Suspect]
     Dosage: UNK, ONCE
     Route: 061

REACTIONS (3)
  - Transient ischaemic attack [Recovered/Resolved]
  - Drug administered at inappropriate site [Unknown]
  - Off label use [Unknown]
